FAERS Safety Report 23863663 (Version 1)
Quarter: 2024Q2

REPORT INFORMATION
  Report Type: Spontaneous
  Country: US (occurrence: US)
  Receive Date: 20240516
  Receipt Date: 20240516
  Transmission Date: 20240716
  Serious: Yes (Other)
  Sender: FDA-Public Use
  Company Number: US-SANOFI-02045689

PATIENT
  Sex: Female

DRUGS (4)
  1. DUPIXENT [Suspect]
     Active Substance: DUPILUMAB
     Indication: Dermatitis atopic
     Dosage: UNK
     Route: 065
     Dates: end: 20240505
  2. PROZAC [Concomitant]
     Active Substance: FLUOXETINE HYDROCHLORIDE
  3. REPATHA [Concomitant]
     Active Substance: EVOLOCUMAB
  4. FISH OIL [Concomitant]
     Active Substance: FISH OIL

REACTIONS (10)
  - Cataract [Recovering/Resolving]
  - Neuropathy peripheral [Recovering/Resolving]
  - Arthritis [Recovering/Resolving]
  - Joint stiffness [Recovering/Resolving]
  - Mobility decreased [Recovering/Resolving]
  - Dry eye [Recovering/Resolving]
  - Blepharitis [Recovering/Resolving]
  - Eye swelling [Recovering/Resolving]
  - Conjunctivitis [Recovering/Resolving]
  - Arthralgia [Recovering/Resolving]
